FAERS Safety Report 17456993 (Version 1)
Quarter: 2020Q1

REPORT INFORMATION
  Report Type: Spontaneous
  Country: US (occurrence: US)
  Receive Date: 20200225
  Receipt Date: 20200225
  Transmission Date: 20200409
  Serious: Yes (Disabling, Other)
  Sender: FDA-Public Use
  Company Number: US-ELI_LILLY_AND_COMPANY-US202002006629

PATIENT
  Sex: Male

DRUGS (2)
  1. HUMALOG [Suspect]
     Active Substance: INSULIN LISPRO
     Dosage: UNK UNK, UNKNOWN
     Route: 058
  2. HUMALOG [Suspect]
     Active Substance: INSULIN LISPRO
     Indication: TYPE 1 DIABETES MELLITUS
     Dosage: UNK UNK, UNKNOWN
     Route: 058

REACTIONS (14)
  - Lymphoma [Recovering/Resolving]
  - Meningitis cryptococcal [Recovering/Resolving]
  - Tremor [Recovering/Resolving]
  - Blindness [Recovering/Resolving]
  - Osteogenesis imperfecta [Recovering/Resolving]
  - Neuropathy peripheral [Recovering/Resolving]
  - Diabetes mellitus inadequate control [Recovering/Resolving]
  - Blood glucose increased [Recovering/Resolving]
  - Accidental exposure to product [Unknown]
  - Pneumonia [Recovering/Resolving]
  - Balance disorder [Recovering/Resolving]
  - Blood glucose decreased [Recovering/Resolving]
  - Coma [Recovering/Resolving]
  - Post transplant lymphoproliferative disorder [Recovering/Resolving]

NARRATIVE: CASE EVENT DATE: 2010
